FAERS Safety Report 10610955 (Version 2)
Quarter: 2014Q4

REPORT INFORMATION
  Report Type: Spontaneous
  Country: US (occurrence: US)
  Receive Date: 20141126
  Receipt Date: 20141126
  Transmission Date: 20150529
  Serious: Yes (Hospitalization)
  Sender: FDA-Public Use
  Company Number: US-ASTRAZENECA-2007UW14285

PATIENT
  Age: 76 Year
  Sex: Female
  Weight: 68.9 kg

DRUGS (43)
  1. LEVOXYL [Concomitant]
     Active Substance: LEVOTHYROXINE SODIUM
  2. PREMARIN VAGINAL [Concomitant]
     Active Substance: ESTROGENS, CONJUGATED
  3. MATURE MULTI VITAMINS [Concomitant]
  4. VITAMIN D [Concomitant]
     Active Substance: CHOLECALCIFEROL
     Dosage: 2,000 1XDAY
  5. EFFEXOR [Concomitant]
     Active Substance: VENLAFAXINE HYDROCHLORIDE
  6. MIRTAZON [Concomitant]
     Active Substance: MIRTAZAPINE
  7. METHENAM MAN [Concomitant]
     Dates: start: 20130207
  8. VITAMIN B2 [Concomitant]
     Active Substance: RIBOFLAVIN
  9. ALIGN - PROBIOTIC [Concomitant]
     Dosage: DAILY
  10. VITAMIN 8-12 [Concomitant]
     Dosage: 1000 MEG
  11. COSAMIN ASU [Concomitant]
     Dosage: 4 PER DAY
  12. NEXIUM [Suspect]
     Active Substance: ESOMEPRAZOLE MAGNESIUM
     Indication: GASTROOESOPHAGEAL REFLUX DISEASE
     Route: 048
  13. TRAMADOL [Concomitant]
     Active Substance: TRAMADOL
  14. FLUTICASONE PROPIONARE [Concomitant]
     Dosage: 50 MEG 2 SPRAY EACH NOSTRIL 1XDAY
     Route: 045
  15. VITAMIN E [Concomitant]
     Active Substance: .ALPHA.-TOCOPHEROL
     Dosage: 400 LU
  16. COENZYME Q10 [Concomitant]
     Active Substance: UBIDECARENONE
  17. EVISTA [Concomitant]
     Active Substance: RALOXIFENE HYDROCHLORIDE
  18. NITROFUR MAC [Concomitant]
     Active Substance: NITROFURANTOIN
     Dates: start: 201301
  19. HYOSCYAMINE-8R [Concomitant]
  20. FISH OIL OMEG-3 [Concomitant]
  21. FLU INJ [Concomitant]
     Dates: start: 20141017
  22. SPIRONOLACTONE. [Concomitant]
     Active Substance: SPIRONOLACTONE
     Dosage: TAKE ONE 50 MG AND 1/2 OF 50 MG AM
  23. NYSTOP [Concomitant]
     Active Substance: NYSTATIN
     Dosage: 100,000 UNITS POWDER APPLY AS NEEDED
     Dates: start: 20120111
  24. VITAMIN B [Concomitant]
     Active Substance: VITAMIN B
  25. SYNTHROID [Concomitant]
     Active Substance: LEVOTHYROXINE SODIUM
  26. RALOXIFENE HCL [Concomitant]
  27. VERAPAMIL [Concomitant]
     Active Substance: VERAPAMIL HYDROCHLORIDE
  28. CALCIUM [Concomitant]
     Active Substance: CALCIUM
  29. ESTER C [Concomitant]
  30. CITRUCEL 3 [Concomitant]
  31. PRIMIDONE. [Concomitant]
     Active Substance: PRIMIDONE
  32. CITALOPRAM [Concomitant]
     Active Substance: CITALOPRAM HYDROBROMIDE
  33. PRAVASTATIN [Concomitant]
     Active Substance: PRAVASTATIN\PRAVASTATIN SODIUM
  34. BUPROPION [Concomitant]
     Active Substance: BUPROPION
     Dates: start: 20140624
  35. MAGNESIUM [Concomitant]
     Active Substance: MAGNESIUM
  36. ASPIRIN BABY [Concomitant]
  37. NADOLOL. [Concomitant]
     Active Substance: NADOLOL
  38. VESICARE [Concomitant]
     Active Substance: SOLIFENACIN SUCCINATE
  39. TOPIRAMATE. [Concomitant]
     Active Substance: TOPIRAMATE
     Dates: start: 20140827
  40. TYLONOL [Concomitant]
     Indication: HEADACHE
     Dosage: AS NEEDED
  41. TETENIS [Concomitant]
  42. ALTACE [Concomitant]
     Active Substance: RAMIPRIL
  43. SIMVASTATIN. [Concomitant]
     Active Substance: SIMVASTATIN

REACTIONS (3)
  - Urinary tract infection [Unknown]
  - Off label use [Unknown]
  - Drug ineffective [Unknown]

NARRATIVE: CASE EVENT DATE: 201209
